FAERS Safety Report 5484349-X (Version None)
Quarter: 2007Q4

REPORT INFORMATION
  Report Type: 
  Country: None (occurrence: None)
  Receive Date: 20071010
  Receipt Date: 20070926
  Transmission Date: 20080405
  Serious: Yes (Other)
  Sender: FDA-Public Use
  Company Number: 2007BI020751

PATIENT
  Sex: Male

DRUGS (1)
  1. AVONEX [Suspect]

REACTIONS (1)
  - BLOOD GLUCOSE INCREASED [None]
